FAERS Safety Report 4598461-0 (Version None)
Quarter: 2005Q1

REPORT INFORMATION
  Report Type: 
  Country: None (occurrence: None)
  Receive Date: 20050303
  Receipt Date: 20050303
  Transmission Date: 20050727
  Serious: Yes (Other)
  Sender: FDA-Public Use
  Company Number: None

PATIENT
  Sex: Female
  Weight: 68 kg

DRUGS (1)
  1. STEM CELL INFUSION [Suspect]
     Dates: start: 20040817

REACTIONS (1)
  - PULMONARY EMBOLISM [None]
